FAERS Safety Report 14320084 (Version 1)
Quarter: 2017Q4

REPORT INFORMATION
  Report Type: Spontaneous
  Country: US (occurrence: US)
  Receive Date: 20171221
  Receipt Date: 20171221
  Transmission Date: 20180321
  Serious: No
  Sender: FDA-Public Use
  Company Number: None

PATIENT
  Age: 69 Year
  Sex: Female

DRUGS (1)
  1. SUTENT [Suspect]
     Active Substance: SUNITINIB MALATE

REACTIONS (6)
  - Parosmia [None]
  - Paraesthesia [None]
  - Headache [None]
  - Dry skin [None]
  - Dysgeusia [None]
  - Blood pressure decreased [None]

NARRATIVE: CASE EVENT DATE: 20171221
